FAERS Safety Report 9369689 (Version 2)
Quarter: 2013Q3

REPORT INFORMATION
  Report Type: Spontaneous
  Country: US (occurrence: US)
  Receive Date: 20130626
  Receipt Date: 20130715
  Transmission Date: 20140515
  Serious: Yes (Hospitalization)
  Sender: FDA-Public Use
  Company Number: US-JNJFOC-20130503204

PATIENT
  Age: 75 Year
  Sex: Male
  Weight: 109.9 kg

DRUGS (19)
  1. ZYTIGA [Suspect]
     Indication: PROSTATE CANCER
     Dosage: 250 MG X 4 TABLETS
     Route: 048
     Dates: start: 201212
  2. PREDNISONE [Suspect]
     Indication: PROSTATE CANCER
     Dosage: TWICE A DAY
     Route: 048
  3. MULTIVITAMINS [Concomitant]
     Route: 065
  4. DOXEPIN [Concomitant]
     Route: 065
  5. OMEGA 3 FATTY ACID [Concomitant]
     Route: 065
  6. ASPIRIN [Concomitant]
     Route: 048
     Dates: start: 201108
  7. COUMADIN [Concomitant]
     Dosage: 5 MG ALTERNATING WITH 2.5 MG
     Route: 048
     Dates: start: 201209
  8. NITROGLYCERIN [Concomitant]
     Route: 062
     Dates: start: 201209
  9. LUPRON [Concomitant]
     Dosage: EVERY 4 WEEKS ONCE
     Route: 065
  10. METOPROLOL TARTRATE [Concomitant]
     Dosage: TWICE A DAY
     Route: 048
     Dates: start: 201209
  11. CEPHALEXIN [Concomitant]
     Route: 048
     Dates: start: 201209
  12. DOCUSATE SODIUM [Concomitant]
     Route: 048
     Dates: start: 201210
  13. TRAZODONE HCL [Concomitant]
     Route: 048
     Dates: start: 201212
  14. ZANTAC [Concomitant]
     Dosage: AS NEEDED
     Route: 048
     Dates: start: 201209
  15. AMOXICILLIN [Concomitant]
     Route: 048
     Dates: start: 20130430
  16. ONDANSETRON HCL [Concomitant]
     Route: 048
     Dates: start: 20130430
  17. NITROGLYCERIN [Concomitant]
     Route: 060
  18. COZAAR [Concomitant]
     Route: 048
     Dates: start: 201209
  19. TYLENOL WITH CODEINE [Concomitant]
     Route: 048
     Dates: start: 201209

REACTIONS (10)
  - Fall [Recovered/Resolved]
  - Gastroenteritis [Recovered/Resolved]
  - Atrioventricular block first degree [Recovered/Resolved]
  - Viral infection [Unknown]
  - Food poisoning [Recovered/Resolved]
  - Hypotension [Recovered/Resolved]
  - Hypokalaemia [Recovered/Resolved]
  - Hyperhidrosis [Recovered/Resolved]
  - Chills [Recovered/Resolved]
  - Dizziness [Recovered/Resolved]
